FAERS Safety Report 4914936-6 (Version None)
Quarter: 2006Q1

REPORT INFORMATION
  Report Type: 
  Country: None (occurrence: None)
  Receive Date: 20060217
  Receipt Date: 20031002
  Transmission Date: 20060701
  Serious: Yes (Hospitalization, Disabling, Other)
  Sender: FDA-Public Use
  Company Number: US-AMGEN-US050148

PATIENT
  Sex: Female

DRUGS (15)
  1. ENBREL [Suspect]
     Indication: RHEUMATOID ARTHRITIS
     Route: 058
     Dates: start: 20030501, end: 20030906
  2. ENBREL [Suspect]
     Dates: start: 20030722, end: 20030903
  3. METHOTREXATE [Suspect]
     Route: 048
     Dates: start: 20021209, end: 20040915
  4. HUMIRA [Suspect]
     Route: 058
     Dates: start: 20040221
  5. PREDNISONE [Concomitant]
     Route: 048
     Dates: start: 20020201
  6. ACTONEL (PROCTOR + GAMBLE) [Concomitant]
  7. METOPROLOL [Concomitant]
  8. PROTONIX [Concomitant]
  9. HYDROCHLOROTHIAZIDE [Concomitant]
  10. SYNTHROID [Concomitant]
  11. FOLIC ACID [Concomitant]
     Dates: start: 20021209
  12. TEMAZEPAM [Concomitant]
     Dates: start: 20030206
  13. TYLENOL [Concomitant]
  14. FUROSEMIDE [Concomitant]
  15. NYSTATIN [Concomitant]

REACTIONS (7)
  - AEROMONA INFECTION [None]
  - CONDITION AGGRAVATED [None]
  - CULTURE STOOL POSITIVE [None]
  - DIARRHOEA [None]
  - DIVERTICULITIS [None]
  - LUNG NEOPLASM [None]
  - PULMONARY CAVITATION [None]
